FAERS Safety Report 10213491 (Version 1)
Quarter: 2014Q2

REPORT INFORMATION
  Report Type: Spontaneous
  Country: US (occurrence: None)
  Receive Date: 20140530
  Receipt Date: 20140530
  Transmission Date: 20141212
  Serious: Yes (Hospitalization)
  Sender: FDA-Public Use
  Company Number: None

PATIENT
  Age: 65 Year
  Sex: Male
  Weight: 98.7 kg

DRUGS (2)
  1. SIROLIMUS [Suspect]
     Route: 048
     Dates: start: 20130502, end: 20130618
  2. VORICONAZOLE [Suspect]
     Route: 048
     Dates: start: 20130615, end: 20130618

REACTIONS (1)
  - Hallucination [None]
